FAERS Safety Report 25610067 (Version 1)
Quarter: 2025Q3

REPORT INFORMATION
  Report Type: Report from Study
  Country: EU (occurrence: EU)
  Receive Date: 20250728
  Receipt Date: 20250728
  Transmission Date: 20251020
  Serious: Yes (Other)
  Sender: BOEHRINGER INGELHEIM
  Company Number: EU-AUROBINDO-AUR-APL-2018-048315

PATIENT
  Age: 55 Year
  Sex: Male

DRUGS (4)
  1. NEVIRAPINE [Suspect]
     Active Substance: NEVIRAPINE
     Indication: HIV infection
  2. FOSAMPRENAVIR [Suspect]
     Active Substance: FOSAMPRENAVIR
     Indication: HIV infection
  3. RITONAVIR [Suspect]
     Active Substance: RITONAVIR
     Indication: HIV infection
  4. ABACAVIR [Suspect]
     Active Substance: ABACAVIR
     Indication: HIV infection

REACTIONS (3)
  - Haemolysis [Recovered/Resolved]
  - Anaemia [Recovered/Resolved]
  - Autoimmune haemolytic anaemia [Recovered/Resolved]
